FAERS Safety Report 8387650-5 (Version None)
Quarter: 2012Q2

REPORT INFORMATION
  Report Type: 
  Country: None (occurrence: None)
  Receive Date: 20120525
  Receipt Date: 20120524
  Transmission Date: 20120825
  Serious: Yes (Death, Hospitalization, Disabling)
  Sender: FDA-Public Use
  Company Number: PHHO2011RU16967

PATIENT
  Sex: Male
  Weight: 69 kg

DRUGS (5)
  1. COREG [Concomitant]
     Indication: PROPHYLAXIS
     Dosage: 2.5 MG, UNK
     Dates: start: 20110907
  2. SANDIMMUNE [Concomitant]
     Indication: OEDEMA
     Dosage: 100 MG, UNK
     Dates: start: 20111221
  3. PRESTARIUM [Concomitant]
     Indication: HYPERTENSION
     Dosage: 60 MG, UNK
     Dates: start: 20110922
  4. LIDOCAINE [Concomitant]
     Indication: ANAESTHESIA
     Dosage: 20 ML, UNK
     Route: 058
     Dates: start: 20111006, end: 20111006
  5. TASIGNA [Suspect]
     Indication: CHRONIC MYELOID LEUKAEMIA
     Dosage: 400 MG, BID
     Dates: start: 20100805

REACTIONS (9)
  - HYPERTENSION [None]
  - CARDIAC FAILURE [None]
  - PULMONARY EMBOLISM [None]
  - SEPSIS [None]
  - PANCREATITIS [None]
  - RENAL FAILURE [None]
  - LYMPHADENOPATHY [None]
  - HAEMATURIA [None]
  - ACUTE MYOCARDIAL INFARCTION [None]
